FAERS Safety Report 11752973 (Version 1)
Quarter: 2015Q4

REPORT INFORMATION
  Report Type: Spontaneous
  Country: US (occurrence: US)
  Receive Date: 20151119
  Receipt Date: 20151119
  Transmission Date: 20160304
  Serious: Yes (Other)
  Sender: FDA-Public Use
  Company Number: US-AMGEN-USASP2015119836

PATIENT
  Age: 61 Year
  Sex: Male
  Weight: 97.51 kg

DRUGS (1)
  1. ENBREL [Suspect]
     Active Substance: ETANERCEPT
     Indication: PRODUCT USED FOR UNKNOWN INDICATION
     Dosage: 50 MG, WEEKLY
     Route: 058
     Dates: start: 2014

REACTIONS (4)
  - Nasopharyngitis [Recovered/Resolved]
  - External ear disorder [Unknown]
  - Malaise [Recovered/Resolved]
  - Ejaculation failure [Unknown]

NARRATIVE: CASE EVENT DATE: 2015
